FAERS Safety Report 24835075 (Version 1)
Quarter: 2025Q1

REPORT INFORMATION
  Report Type: Spontaneous
  Country: US (occurrence: US)
  Receive Date: 20250113
  Receipt Date: 20250113
  Transmission Date: 20250409
  Serious: No
  Sender: ABBVIE
  Company Number: US-ABBVIE-6082638

PATIENT
  Age: 13 Year
  Sex: Male

DRUGS (1)
  1. TEFLARO [Suspect]
     Active Substance: CEFTAROLINE FOSAMIL
     Indication: Meningitis staphylococcal
     Route: 065

REACTIONS (2)
  - Off label use [Unknown]
  - Rash [Unknown]
